FAERS Safety Report 8339549-8 (Version None)
Quarter: 2012Q2

REPORT INFORMATION
  Report Type: 
  Country: None (occurrence: None)
  Receive Date: 20120507
  Receipt Date: 20120430
  Transmission Date: 20120825
  Serious: Yes (Hospitalization)
  Sender: FDA-Public Use
  Company Number: PHHY2012FR037619

PATIENT
  Sex: Female

DRUGS (6)
  1. TAXOTERE [Suspect]
     Dosage: 111 MG, UNK
     Route: 042
     Dates: start: 20120228
  2. ZOMETA [Suspect]
     Indication: HYPERCALCAEMIA
     Dosage: 4 MG, UNK
     Route: 042
     Dates: start: 20120207
  3. MEDROL [Concomitant]
     Dosage: 48 MG, UNK
     Route: 048
  4. TAXOTERE [Suspect]
     Indication: BREAST CANCER
     Dosage: 111 MG, UNK
     Route: 042
     Dates: start: 20120207
  5. XELODA [Suspect]
     Indication: BREAST CANCER
     Dosage: 2960 MG, UNK
     Route: 048
     Dates: start: 20120207
  6. LOVENOX [Concomitant]
     Dosage: 4000 IU, UNK
     Route: 042

REACTIONS (7)
  - MUCOSAL INFLAMMATION [None]
  - SKIN TOXICITY [None]
  - SKIN EXFOLIATION [None]
  - HYPERKERATOSIS [None]
  - THROAT IRRITATION [None]
  - PALMAR-PLANTAR ERYTHRODYSAESTHESIA SYNDROME [None]
  - GAIT DISTURBANCE [None]
